FAERS Safety Report 4325992-0 (Version None)
Quarter: 2004Q1

REPORT INFORMATION
  Report Type: 
  Country: None (occurrence: None)
  Receive Date: 20040329
  Receipt Date: 20040322
  Transmission Date: 20041129
  Serious: Yes (Hospitalization)
  Sender: FDA-Public Use
  Company Number: FR-GLAXOSMITHKLINE-B0327451A

PATIENT
  Age: 57 Year
  Sex: Female
  Weight: 53 kg

DRUGS (2)
  1. VALACYCLOVIR HCL [Suspect]
     Dosage: 1500MG THREE TIMES PER DAY
     Route: 048
     Dates: start: 20030117, end: 20030212
  2. MOPRAL [Suspect]
     Dosage: 20MG UNKNOWN
     Route: 048
     Dates: start: 20030117, end: 20030210

REACTIONS (1)
  - NEUTROPENIA [None]
